FAERS Safety Report 7492530-3 (Version None)
Quarter: 2011Q2

REPORT INFORMATION
  Report Type: 
  Country: None (occurrence: None)
  Receive Date: 20110519
  Receipt Date: 20110512
  Transmission Date: 20111010
  Serious: Yes (Hospitalization)
  Sender: FDA-Public Use
  Company Number: GB-PFIZER INC-2011103084

PATIENT
  Age: 60 Year
  Sex: Female

DRUGS (7)
  1. CEPHALEXIN [Suspect]
     Indication: URINARY TRACT INFECTION
     Dosage: UNK
  2. METRONIDAZOLE [Suspect]
     Indication: URINARY TRACT INFECTION
     Dosage: UNK
  3. INDAPAMIDE [Concomitant]
     Dosage: UNK
  4. TRIMETHOPRIM [Suspect]
     Indication: URINARY TRACT INFECTION
     Dosage: UNK
  5. ACEBUTOLOL [Concomitant]
     Dosage: UNK
  6. WARFARIN SODIUM [Suspect]
     Indication: PULMONARY EMBOLISM
     Dosage: UNK
  7. NIFEDIPINE [Concomitant]
     Dosage: UNK

REACTIONS (12)
  - DRUG INTERACTION [None]
  - HAEMOGLOBIN DECREASED [None]
  - RETROPERITONEAL HAEMATOMA [None]
  - WHITE BLOOD CELL COUNT INCREASED [None]
  - DEEP VEIN THROMBOSIS [None]
  - URINARY TRACT INFECTION [None]
  - HYPOVOLAEMIC SHOCK [None]
  - ABDOMINAL PAIN [None]
  - INTERNATIONAL NORMALISED RATIO INCREASED [None]
  - PYREXIA [None]
  - MUSCLE HAEMORRHAGE [None]
  - URETERIC OBSTRUCTION [None]
